FAERS Safety Report 21848953 (Version 1)
Quarter: 2023Q1

REPORT INFORMATION
  Report Type: Spontaneous
  Country: JP (occurrence: JP)
  Receive Date: 20230111
  Receipt Date: 20230111
  Transmission Date: 20230417
  Serious: Yes (Other)
  Sender: FDA-Public Use
  Company Number: JP-GSKNCCC-Case-01642823_AE-65983

PATIENT

DRUGS (4)
  1. FLUTICASONE FUROATE\VILANTEROL TRIFENATATE [Suspect]
     Active Substance: FLUTICASONE FUROATE\VILANTEROL TRIFENATATE
     Indication: Asthma
     Dosage: 200 ?G
     Route: 055
     Dates: end: 20230105
  2. CHLORPHENIRAMINE MALEATE [Suspect]
     Active Substance: CHLORPHENIRAMINE MALEATE
     Dosage: UNK
     Route: 048
     Dates: end: 20230105
  3. PROCATEROL HYDROCHLORIDE [Suspect]
     Active Substance: PROCATEROL HYDROCHLORIDE
     Dosage: UNK
     Route: 048
     Dates: end: 20230105
  4. ISOPROPAMIDE IODIDE [Suspect]
     Active Substance: ISOPROPAMIDE IODIDE

REACTIONS (1)
  - Arrhythmia [Recovered/Resolved]
